FAERS Safety Report 5534771-8 (Version None)
Quarter: 2007Q4

REPORT INFORMATION
  Report Type: 
  Country: None (occurrence: None)
  Receive Date: 20071205
  Receipt Date: 20071128
  Transmission Date: 20080405
  Serious: Yes (Hospitalization)
  Sender: FDA-Public Use
  Company Number: JP-BAYER-200710945BYL

PATIENT
  Age: 24 Year
  Sex: Female

DRUGS (3)
  1. SH T 00186 [Suspect]
     Indication: DYSMENORRHOEA
     Dosage: TOTAL DAILY DOSE: 1 DF
     Route: 048
     Dates: start: 20071104, end: 20071105
  2. OHTA ISAN [Concomitant]
     Indication: ABDOMINAL PAIN UPPER
     Route: 048
     Dates: start: 20071028, end: 20071028
  3. PRIMPERAN INJ [Concomitant]
     Indication: ABDOMINAL PAIN UPPER
     Route: 048
     Dates: start: 20071031, end: 20071102

REACTIONS (1)
  - LEUKOCYTOCLASTIC VASCULITIS [None]
